FAERS Safety Report 5358131-8 (Version None)
Quarter: 2007Q2

REPORT INFORMATION
  Report Type: 
  Country: None (occurrence: None)
  Receive Date: 20070530
  Receipt Date: 20061128
  Transmission Date: 20071010
  Serious: Yes (Other)
  Sender: FDA-Public Use
  Company Number: US200606000592

PATIENT
  Sex: Male
  Weight: 99.8 kg

DRUGS (1)
  1. ZYPREXA [Suspect]
     Indication: STRESS
     Dates: start: 19950101

REACTIONS (2)
  - DIABETES MELLITUS [None]
  - DIABETIC KETOACIDOSIS [None]
